FAERS Safety Report 15921460 (Version 1)
Quarter: 2019Q1

REPORT INFORMATION
  Report Type: Spontaneous
  Country: US (occurrence: US)
  Receive Date: 20190205
  Receipt Date: 20190205
  Transmission Date: 20190417
  Serious: Yes (Hospitalization)
  Sender: FDA-Public Use
  Company Number: US-VIFOR (INTERNATIONAL) INC.-VIT-2019-00811

PATIENT
  Age: 62 Year
  Sex: Male

DRUGS (26)
  1. HYDRALAZINE HCL [Concomitant]
     Active Substance: HYDRALAZINE HYDROCHLORIDE
  2. FLOMAX [Concomitant]
     Active Substance: TAMSULOSIN HYDROCHLORIDE
  3. VITAMIN E COMPLETE [Concomitant]
  4. CALCIUM+D+K [Concomitant]
  5. GABAPENTIN. [Concomitant]
     Active Substance: GABAPENTIN
  6. CYANOCOBALAMIN. [Concomitant]
     Active Substance: CYANOCOBALAMIN
  7. LASIX [Concomitant]
     Active Substance: FUROSEMIDE
  8. LIQUACEL [Concomitant]
  9. HUMALOG KWIKPEN [Concomitant]
     Active Substance: INSULIN LISPRO
  10. FUROSEMIDE. [Concomitant]
     Active Substance: FUROSEMIDE
  11. CARDIZEM [Concomitant]
     Active Substance: DILTIAZEM HYDROCHLORIDE
  12. LIQUAFIBER [Concomitant]
  13. DILTIAZEM CD [Concomitant]
     Active Substance: DILTIAZEM
  14. LEVEMIR [Concomitant]
     Active Substance: INSULIN DETEMIR
  15. METOPROLOL TARTRATE. [Concomitant]
     Active Substance: METOPROLOL TARTRATE
  16. PANTOPRAZOLE SODIUM. [Concomitant]
     Active Substance: PANTOPRAZOLE SODIUM
  17. VITAMIN B12 [Concomitant]
     Active Substance: CYANOCOBALAMIN
  18. DOXYCYCLINE HYCLATE. [Concomitant]
     Active Substance: DOXYCYCLINE HYCLATE
  19. SODIUM CACODYLATE [Concomitant]
  20. VELTASSA [Suspect]
     Active Substance: PATIROMER
     Indication: HYPERKALAEMIA
     Route: 048
     Dates: start: 20160325
  21. EPOGEN [Concomitant]
     Active Substance: ERYTHROPOIETIN
  22. CALCITRATE [Concomitant]
     Active Substance: CALCIUM CITRATE
  23. ARANESP (ALBUMIN FREE) [Concomitant]
  24. ERGOCALCIFEROL. [Concomitant]
     Active Substance: ERGOCALCIFEROL
  25. TAMSULOSIN HCL [Concomitant]
     Active Substance: TAMSULOSIN HYDROCHLORIDE
  26. XARELTO [Concomitant]
     Active Substance: RIVAROXABAN

REACTIONS (3)
  - Product dose omission [Unknown]
  - Hernia repair [Unknown]
  - Bladder catheterisation [Unknown]

NARRATIVE: CASE EVENT DATE: 20190104
